FAERS Safety Report 12375929 (Version 2)
Quarter: 2016Q2

REPORT INFORMATION
  Report Type: Report from Study
  Country: US (occurrence: US)
  Receive Date: 20160517
  Receipt Date: 20160606
  Transmission Date: 20160815
  Serious: Yes (Death, Hospitalization, Other)
  Sender: FDA-Public Use
  Company Number: US-BAYER-2016-068245

PATIENT
  Age: 62 Year
  Sex: Female
  Weight: 58.96 kg

DRUGS (2)
  1. ADEMPAS [Suspect]
     Active Substance: RIOCIGUAT
     Indication: PULMONARY ARTERIAL HYPERTENSION
     Dosage: 1 MG, TID
     Route: 048
  2. ADEMPAS [Suspect]
     Active Substance: RIOCIGUAT
     Indication: PULMONARY ARTERIAL HYPERTENSION
     Dosage: UNK
     Dates: start: 20160316

REACTIONS (5)
  - Pulmonary hypertension [Fatal]
  - Lethargy [Unknown]
  - Hypotension [Unknown]
  - Blood pressure systolic decreased [None]
  - Oedema [Unknown]

NARRATIVE: CASE EVENT DATE: 20160406
